FAERS Safety Report 9305139 (Version 1)
Quarter: 2013Q2

REPORT INFORMATION
  Report Type: Spontaneous
  Country: US (occurrence: None)
  Receive Date: 20130521
  Receipt Date: 20130521
  Transmission Date: 20140414
  Serious: Yes (Other)
  Sender: FDA-Public Use
  Company Number: 1713747-2013-99905

PATIENT
  Age: 66 Year
  Sex: Female
  Weight: 60.3 kg

DRUGS (3)
  1. DELFLEX [Suspect]
  2. LIBERTY DIALYSIS CYCLER [Concomitant]
  3. LIBERTY DIALYSIS CYCLER TUBING [Concomitant]

REACTIONS (1)
  - Peritonitis [None]
